FAERS Safety Report 15617644 (Version 5)
Quarter: 2022Q2

REPORT INFORMATION
  Report Type: Report from Study
  Country: FR (occurrence: FR)
  Receive Date: 20181114
  Receipt Date: 20220530
  Transmission Date: 20220721
  Serious: Yes (Death, Hospitalization, Other)
  Sender: FDA-Public Use
  Company Number: FR-AMGEN-FRACT2018151977

PATIENT
  Age: 71 Year
  Sex: Male

DRUGS (19)
  1. PANITUMUMAB [Suspect]
     Active Substance: PANITUMUMAB
     Indication: Colorectal cancer metastatic
     Dosage: 432 MILLIGRAM, CYCLICAL (EVERY 1 CYCLE)
     Route: 042
     Dates: start: 20180904, end: 20181015
  2. ELOXATIN [Suspect]
     Active Substance: OXALIPLATIN
     Indication: Colorectal cancer metastatic
     Dosage: 181.3 MILLIGRAM, CYCLICAL (EVERY 1 CYCLE)
     Route: 042
     Dates: start: 20180904, end: 20181015
  3. LEVOLEUCOVORIN CALCIUM [Suspect]
     Active Substance: LEVOLEUCOVORIN CALCIUM
     Indication: Colorectal cancer metastatic
     Dosage: 428 MILLIGRAM, CYCLICAL (EVERY 1 CYCLE)
     Route: 042
     Dates: start: 20180904, end: 20181015
  4. FLUOROURACIL [Suspect]
     Active Substance: FLUOROURACIL
     Indication: Colorectal cancer metastatic
     Dosage: 684.80 MG, UNK
     Route: 040
     Dates: start: 20180904, end: 20181015
  5. FLUOROURACIL [Suspect]
     Active Substance: FLUOROURACIL
     Dosage: 4108 MILLIGRAM, CYCLICAL (EVERY 1 CYCLE)
     Route: 042
     Dates: start: 20180904, end: 20181017
  6. CIPROFLOXACIN [Concomitant]
     Active Substance: CIPROFLOXACIN
     Indication: Arthritis
     Dosage: 750 MILLIGRAM
     Route: 048
     Dates: end: 20181004
  7. KETOPROFEN [Concomitant]
     Active Substance: KETOPROFEN
     Indication: Arterial disorder
     Dosage: 2.5 PERCENT GEL
     Dates: end: 20181009
  8. IXPRIM [Concomitant]
     Active Substance: ACETAMINOPHEN\TRAMADOL HYDROCHLORIDE
     Indication: Abdominal pain
     Dosage: UNK
     Route: 048
     Dates: end: 20181009
  9. CRESTOR [Concomitant]
     Active Substance: ROSUVASTATIN CALCIUM
     Indication: Dyslipidaemia
     Dosage: 10 MILLIGRAM
     Route: 048
     Dates: end: 2016
  10. KARDEGIC [Concomitant]
     Active Substance: ASPIRIN DL-LYSINE
     Indication: Arterial disorder
     Dosage: UNK
     Route: 048
     Dates: start: 201705
  11. KARDEGIC [Concomitant]
     Active Substance: ASPIRIN DL-LYSINE
     Indication: Cardiac disorder
  12. BISOPROLOL FUMARATE [Concomitant]
     Active Substance: BISOPROLOL FUMARATE
     Indication: Hypertension
     Dosage: UNK
     Route: 048
     Dates: start: 2016
  13. DEXERYL [Concomitant]
     Indication: Prophylaxis
     Dosage: UNK
     Dates: start: 20180904
  14. VALSARTAN [Concomitant]
     Active Substance: VALSARTAN
     Dosage: 160, UNK
     Route: 048
  15. MOVICOL [Concomitant]
     Active Substance: POLYETHYLENE GLYCOL 3350\POTASSIUM CHLORIDE\SODIUM BICARBONATE\SODIUM CHLORIDE
     Dosage: 2 SACHETS MORNING AND NOON
     Route: 048
  16. DULCOLAX NOS [Concomitant]
     Active Substance: BISACODYL OR DOCUSATE SODIUM
     Dosage: 2 TABLETS IN THE EVENING
     Route: 048
  17. DOXYCYCLINE [Concomitant]
     Active Substance: DOXYCYCLINE
     Indication: Prophylaxis
     Dosage: 100 MG 1 TABLET MORNING AND EVENING
     Route: 048
  18. EMEND [Concomitant]
     Active Substance: APREPITANT
     Indication: Prophylaxis of nausea and vomiting
     Dosage: UNK
     Route: 048
  19. PRIMPERAN [Concomitant]
     Active Substance: METOCLOPRAMIDE HYDROCHLORIDE
     Indication: Prophylaxis of nausea and vomiting
     Dosage: 1 TABLET MORNING, NOON, AND EVENING.
     Route: 048

REACTIONS (1)
  - Tumour perforation [Fatal]

NARRATIVE: CASE EVENT DATE: 20181024
